FAERS Safety Report 6313583-1 (Version None)
Quarter: 2009Q3

REPORT INFORMATION
  Report Type: 
  Country: None (occurrence: None)
  Receive Date: 20090818
  Receipt Date: 20090807
  Transmission Date: 20100115
  Serious: Yes (Other)
  Sender: FDA-Public Use
  Company Number: SG-ROCHE-649461

PATIENT
  Age: 9 Year
  Sex: Male
  Weight: 29.5 kg

DRUGS (4)
  1. TAMIFLU [Suspect]
     Route: 048
     Dates: start: 20090804, end: 20090805
  2. NASONEX [Concomitant]
     Dates: end: 20090803
  3. ACETAMINOPHEN [Concomitant]
  4. ZYRTEC [Concomitant]
     Dates: end: 20090804

REACTIONS (1)
  - DELIRIUM [None]
